FAERS Safety Report 15294101 (Version 5)
Quarter: 2018Q4

REPORT INFORMATION
  Report Type: Report from Study
  Country: US (occurrence: US)
  Receive Date: 20180820
  Receipt Date: 20181113
  Transmission Date: 20190204
  Serious: Yes (Other)
  Sender: FDA-Public Use
  Company Number: PHEH2018US033483

PATIENT
  Age: 2 Year
  Sex: Female
  Weight: 14.52 kg

DRUGS (4)
  1. AFINITOR DISPERZ [Suspect]
     Active Substance: EVEROLIMUS
     Dosage: 5 MG, QD
     Route: 048
     Dates: start: 20180920
  2. AFINITOR DISPERZ [Suspect]
     Active Substance: EVEROLIMUS
     Indication: SEIZURE
     Dosage: 7 MG, UNK
     Route: 048
     Dates: start: 20180901, end: 20180910
  3. AFINITOR DISPERZ [Suspect]
     Active Substance: EVEROLIMUS
     Dosage: 5 MG + 7 MG
     Route: 048
     Dates: start: 20180911, end: 20180919
  4. AFINITOR DISPERZ [Suspect]
     Active Substance: EVEROLIMUS
     Indication: EPILEPSY
     Dosage: 5 MG, QD
     Route: 048
     Dates: start: 20180618, end: 20180830

REACTIONS (5)
  - Condition aggravated [Unknown]
  - Eczema [Not Recovered/Not Resolved]
  - Rash [Recovered/Resolved]
  - Seizure [Unknown]
  - Dry skin [Unknown]

NARRATIVE: CASE EVENT DATE: 20180701
